FAERS Safety Report 14930831 (Version 1)
Quarter: 2018Q2

REPORT INFORMATION
  Report Type: Spontaneous
  Country: FR (occurrence: FR)
  Receive Date: 20180524
  Receipt Date: 20180524
  Transmission Date: 20180711
  Serious: Yes (Other)
  Sender: FDA-Public Use
  Company Number: FR-MERCK KGAA-2048358

PATIENT
  Age: 48 Year
  Sex: Female

DRUGS (1)
  1. NOVOTHYROX [Suspect]
     Active Substance: LEVOTHYROXINE SODIUM
     Indication: PRODUCT USED FOR UNKNOWN INDICATION

REACTIONS (17)
  - Alopecia [None]
  - Dysphonia [None]
  - Blood thyroid stimulating hormone increased [None]
  - Arrhythmia [None]
  - Fatigue [None]
  - Asthenia [Recovered/Resolved]
  - Depression [None]
  - Social avoidant behaviour [None]
  - Headache [None]
  - Diarrhoea [None]
  - Tachycardia [None]
  - Thyroid pain [None]
  - Impaired work ability [None]
  - Dyspnoea [None]
  - Apathy [None]
  - Mood altered [None]
  - Cardiac disorder [None]

NARRATIVE: CASE EVENT DATE: 20170926
